FAERS Safety Report 15660066 (Version 1)
Quarter: 2018Q4

REPORT INFORMATION
  Report Type: Spontaneous
  Country: AU (occurrence: AU)
  Receive Date: 20181127
  Receipt Date: 20181127
  Transmission Date: 20190205
  Serious: Yes (Other)
  Sender: FDA-Public Use
  Company Number: AU-GW PHARMA-201805AUGW0079

PATIENT

DRUGS (7)
  1. CLOBAZAM. [Suspect]
     Active Substance: CLOBAZAM
     Dosage: 10 MILLIGRAM, QD (2.5 MILLIGRAM MORNING, LUNCH AND 5 MG AT NIGHT)
     Route: 065
     Dates: start: 2018
  2. EPIDIOLEX [Suspect]
     Active Substance: CANNABIDIOL
     Indication: LENNOX-GASTAUT SYNDROME
     Dosage: 20.2 MG/KG, 720 MILLIGRAM, QD
     Route: 048
     Dates: start: 20180412, end: 20180517
  3. EPIDIOLEX [Suspect]
     Active Substance: CANNABIDIOL
     Dosage: 25.3 MG/KG, 900 MILLIGRAM, QD
     Route: 048
     Dates: start: 20180517
  4. CLONAZEPAM. [Suspect]
     Active Substance: CLONAZEPAM
     Indication: LENNOX-GASTAUT SYNDROME
     Dosage: 18 DROPS, QD
  5. TOPAMAX [Concomitant]
     Active Substance: TOPIRAMATE
     Indication: LENNOX-GASTAUT SYNDROME
     Dosage: 300 MILLIGRAM, QD
     Route: 065
  6. CLOBAZAM. [Suspect]
     Active Substance: CLOBAZAM
     Indication: LENNOX-GASTAUT SYNDROME
     Dosage: 15 MILLIGRAM, UNK FREQUENCY
     Dates: end: 201805
  7. CLONAZEPAM. [Suspect]
     Active Substance: CLONAZEPAM
     Dosage: 20 MILLIGRAM, QD

REACTIONS (1)
  - Sedation [Recovered/Resolved]

NARRATIVE: CASE EVENT DATE: 20180511
